FAERS Safety Report 22170545 (Version 2)
Quarter: 2023Q2

REPORT INFORMATION
  Report Type: Report from Study
  Country: ES (occurrence: ES)
  Receive Date: 20230404
  Receipt Date: 20230515
  Transmission Date: 20230721
  Serious: Yes (Hospitalization)
  Sender: FDA-Public Use
  Company Number: ES-ABBVIE-4300484

PATIENT
  Age: 78 Year
  Sex: Female
  Weight: 60 kg

DRUGS (19)
  1. TNB-383B [Suspect]
     Active Substance: TNB-383B
     Indication: Plasma cell myeloma refractory
     Route: 042
     Dates: start: 20221229
  2. DEXAMETHASONE [Suspect]
     Active Substance: DEXAMETHASONE
     Indication: Plasma cell myeloma refractory
     Dosage: ON DAYS 1,8 AND 15 OF EACH CYCLE
     Route: 048
     Dates: start: 20221229, end: 20230202
  3. DEXAMETHASONE [Suspect]
     Active Substance: DEXAMETHASONE
     Indication: Plasma cell myeloma refractory
     Route: 042
     Dates: start: 20230126, end: 20230126
  4. POMALIDOMIDE [Suspect]
     Active Substance: POMALIDOMIDE
     Indication: Plasma cell myeloma refractory
     Dosage: ON DAYS 1-14 OF EACH CYCLE
     Route: 048
     Dates: start: 20221222, end: 20230204
  5. BEMIPARIN SODIUM [Concomitant]
     Active Substance: BEMIPARIN SODIUM
     Indication: Peripheral venous disease
     Route: 058
     Dates: start: 201809
  6. SULFAMETHOXAZOLE\TRIMETHOPRIM [Concomitant]
     Active Substance: SULFAMETHOXAZOLE\TRIMETHOPRIM
     Indication: Antibiotic prophylaxis
     Dosage: TIME INTERVAL: 0.33333333 WEEKS: 800/160MG
     Route: 048
     Dates: start: 201511
  7. ACYCLOVIR [Concomitant]
     Active Substance: ACYCLOVIR
     Indication: Antiviral prophylaxis
     Route: 048
     Dates: start: 201511
  8. CHOLESTYRAMINE [Concomitant]
     Active Substance: CHOLESTYRAMINE
     Indication: Blood cholesterol increased
     Dosage: 1 SACHET
     Route: 048
     Dates: start: 202109
  9. LISINOPRIL [Concomitant]
     Active Substance: LISINOPRIL
     Indication: Hypertension
     Route: 048
     Dates: start: 201712
  10. FUROSEMIDE [Concomitant]
     Active Substance: FUROSEMIDE
     Indication: Hypertension
     Route: 048
     Dates: start: 201612
  11. SIMVASTATIN [Concomitant]
     Active Substance: SIMVASTATIN
     Indication: Blood cholesterol increased
     Route: 048
     Dates: start: 201303
  12. CALCIFEDIOL [Concomitant]
     Active Substance: CALCIFEDIOL
     Indication: Vitamin supplementation
     Route: 048
     Dates: start: 201101
  13. CALCIUM [Concomitant]
     Active Substance: CALCIUM
     Indication: Prophylaxis
     Route: 048
     Dates: start: 202010
  14. VITAMIN D [Concomitant]
     Active Substance: VITAMIN D NOS
     Indication: Prophylaxis
     Route: 048
     Dates: start: 202010
  15. LEVOSULPIRIDE [Concomitant]
     Active Substance: LEVOSULPIRIDE
     Indication: Gastrointestinal disorder prophylaxis
     Route: 048
     Dates: start: 201612
  16. LYRICA [Concomitant]
     Active Substance: PREGABALIN
     Indication: Pain prophylaxis
     Dosage: TIME INTERVAL: 0.33333333 WEEKS
     Route: 048
     Dates: start: 201811
  17. LORAZEPAM [Concomitant]
     Active Substance: LORAZEPAM
     Indication: Sleep disorder therapy
     Dosage: TIME INTERVAL: AS NECESSARY
     Route: 048
     Dates: start: 201109
  18. PANTOPRAZOLE SODIUM [Concomitant]
     Active Substance: PANTOPRAZOLE SODIUM
     Indication: Gastrooesophageal reflux prophylaxis
     Route: 048
     Dates: start: 201602
  19. ACETAMINOPHEN [Concomitant]
     Active Substance: ACETAMINOPHEN
     Indication: Pain prophylaxis
     Dosage: TIME INTERVAL: AS NECESSARY
     Route: 048
     Dates: start: 2000

REACTIONS (1)
  - Pneumonia [Recovered/Resolved]

NARRATIVE: CASE EVENT DATE: 20230204
